FAERS Safety Report 18248070 (Version 1)
Quarter: 2020Q3

REPORT INFORMATION
  Report Type: Spontaneous
  Country: US (occurrence: US)
  Receive Date: 20200909
  Receipt Date: 20200909
  Transmission Date: 20201103
  Serious: No
  Sender: FDA-Public Use
  Company Number: US-PERRIGO-20US008694

PATIENT
  Age: 62 Year
  Sex: Male
  Weight: 56.69 kg

DRUGS (4)
  1. ALBUTEROL SULFATE. [Suspect]
     Active Substance: ALBUTEROL SULFATE
     Dosage: 1/4 SPRAY, PARTIAL DOSE, PRN
     Route: 055
     Dates: start: 202006
  2. FLUTICASONE PROPIONATE. [Concomitant]
     Active Substance: FLUTICASONE PROPIONATE
     Indication: BRONCHITIS CHRONIC
     Dosage: UNK
     Route: 065
  3. ALBUTEROL SULFATE. [Suspect]
     Active Substance: ALBUTEROL SULFATE
     Indication: BRONCHITIS CHRONIC
     Dosage: 90 TO 180 MCG, PRN
     Route: 055
     Dates: start: 202004, end: 202006
  4. LISINOPRIL. [Concomitant]
     Active Substance: LISINOPRIL
     Indication: BLOOD PRESSURE ABNORMAL
     Dosage: UNK
     Route: 065

REACTIONS (3)
  - Underdose [Not Recovered/Not Resolved]
  - Drug ineffective [Unknown]
  - Device delivery system issue [Not Recovered/Not Resolved]

NARRATIVE: CASE EVENT DATE: 202004
